FAERS Safety Report 4831381-2 (Version None)
Quarter: 2005Q4

REPORT INFORMATION
  Report Type: 
  Country: None (occurrence: None)
  Receive Date: 20051118
  Receipt Date: 20041203
  Transmission Date: 20060501
  Serious: Yes (Other)
  Sender: FDA-Public Use
  Company Number: GB-GLAXOSMITHKLINE-B0360440A

PATIENT
  Sex: Female

DRUGS (1)
  1. PAROXETINE HYDROCHLORIDE [Suspect]
     Route: 065
     Dates: start: 19990426, end: 20031101

REACTIONS (6)
  - EUPHORIC MOOD [None]
  - FEELING ABNORMAL [None]
  - ILL-DEFINED DISORDER [None]
  - OVERDOSE [None]
  - PALPITATIONS [None]
  - SUICIDE ATTEMPT [None]
